FAERS Safety Report 7898304-3 (Version None)
Quarter: 2011Q4

REPORT INFORMATION
  Report Type: 
  Country: None (occurrence: None)
  Receive Date: 20111107
  Receipt Date: 20111026
  Transmission Date: 20120403
  Serious: Yes (Hospitalization)
  Sender: FDA-Public Use
  Company Number: CHPA2011FR015454

PATIENT
  Sex: Female

DRUGS (7)
  1. ERCEFURYL [Suspect]
     Indication: SKIN LESION
     Dosage: UNK, UNK
     Route: 048
     Dates: start: 20110920, end: 20111006
  2. CRESTOR [Concomitant]
     Dosage: 10 MG, UNK
  3. LAMISIL [Suspect]
     Indication: SKIN LESION
     Dosage: UNK, UNK
     Route: 061
     Dates: start: 20110920, end: 20111004
  4. PRETERAX                           /01421201/ [Concomitant]
     Dosage: 2.5MG/0.625MG, UNK
  5. CALCIUM CARBONATE [Concomitant]
     Dosage: 500 MG, UNK
  6. LANSOPRAZOLE [Concomitant]
     Dosage: UNK, UNK
  7. FUSIDIC ACID [Suspect]
     Indication: SKIN LESION
     Dosage: UNK, UNK
     Route: 061
     Dates: start: 20110920, end: 20111004

REACTIONS (3)
  - SKIN WARM [None]
  - ECZEMA [None]
  - RASH [None]
